FAERS Safety Report 7122152-5 (Version None)
Quarter: 2010Q4

REPORT INFORMATION
  Report Type: 
  Country: None (occurrence: None)
  Receive Date: 20101122
  Receipt Date: 20101122
  Transmission Date: 20110411
  Serious: No
  Sender: FDA-Public Use
  Company Number: None

PATIENT
  Age: 63 Year
  Sex: Male

DRUGS (5)
  1. REVLIMID [Suspect]
     Indication: MULTIPLE MYELOMA
     Dosage: 10MG DAILY 21D/28D ORALLY
     Route: 048
  2. OMEPRAZOLE [Concomitant]
  3. ONDANSETRON [Concomitant]
  4. PROZAC [Concomitant]
  5. PHOSLO [Concomitant]

REACTIONS (2)
  - FATIGUE [None]
  - LEUKOPENIA [None]
